FAERS Safety Report 14889984 (Version 1)
Quarter: 2018Q2

REPORT INFORMATION
  Report Type: Spontaneous
  Country: AG (occurrence: AG)
  Receive Date: 20180514
  Receipt Date: 20180514
  Transmission Date: 20180711
  Serious: Yes (Hospitalization, Other)
  Sender: FDA-Public Use
  Company Number: AG-MANKIND-000056

PATIENT
  Age: 40 Year
  Sex: Male
  Weight: 77.1 kg

DRUGS (1)
  1. RISPERIDONE. [Suspect]
     Active Substance: RISPERIDONE
     Indication: SUICIDAL IDEATION
     Dosage: 3 MG OF RISPERIDONE BID

REACTIONS (3)
  - Dystonia [Recovered/Resolved]
  - Acute kidney injury [Recovered/Resolved]
  - Angioedema [Recovered/Resolved]
